FAERS Safety Report 6956615-X (Version None)
Quarter: 2010Q3

REPORT INFORMATION
  Report Type: 
  Country: None (occurrence: None)
  Receive Date: 20100830
  Receipt Date: 20100819
  Transmission Date: 20110219
  Serious: Yes (Life-Threatening, Hospitalization, Other)
  Sender: FDA-Public Use
  Company Number: NL-PFIZER INC-2010101883

PATIENT
  Age: 43 Year
  Sex: Female

DRUGS (2)
  1. SERTRALINE HYDROCHLORIDE [Suspect]
     Indication: DEPRESSION
     Dosage: 100 MG, 1X/DAY
  2. INDOMETHACIN [Interacting]
     Indication: MUSCULOSKELETAL PAIN
     Dosage: 75 MG, 2X/DAY

REACTIONS (15)
  - AMNESIA [None]
  - ARTERIOSCLEROSIS CORONARY ARTERY [None]
  - CHILLS [None]
  - COMA [None]
  - DIARRHOEA [None]
  - DRUG INTERACTION [None]
  - DRUG LEVEL INCREASED [None]
  - EXTENSOR PLANTAR RESPONSE [None]
  - HEADACHE [None]
  - METABOLIC ACIDOSIS [None]
  - MYDRIASIS [None]
  - MYOCARDIAL INFARCTION [None]
  - RHABDOMYOLYSIS [None]
  - SEROTONIN SYNDROME [None]
  - VOMITING [None]
